FAERS Safety Report 24793430 (Version 2)
Quarter: 2025Q1

REPORT INFORMATION
  Report Type: Report from Study
  Country: US (occurrence: US)
  Receive Date: 20241231
  Receipt Date: 20250224
  Transmission Date: 20250408
  Serious: Yes (Other)
  Sender: ALEXION PHARMACEUTICALS
  Company Number: US-ASTRAZENECA-202410USA005994US

PATIENT

DRUGS (1)
  1. FASENRA [Suspect]
     Active Substance: BENRALIZUMAB
     Indication: Asthma

REACTIONS (4)
  - Pneumonia [Unknown]
  - Cough [Unknown]
  - Upper-airway cough syndrome [Unknown]
  - Drug ineffective [Unknown]
